FAERS Safety Report 23554292 (Version 2)
Quarter: 2024Q2

REPORT INFORMATION
  Report Type: Report from Study
  Country: CA (occurrence: CA)
  Receive Date: 20240222
  Receipt Date: 20240417
  Transmission Date: 20240716
  Serious: Yes (Other)
  Sender: FDA-Public Use
  Company Number: CA-JNJFOC-20231260194

PATIENT
  Age: 69 Year
  Sex: Female

DRUGS (3)
  1. SIMPONI [Suspect]
     Active Substance: GOLIMUMAB
     Indication: Rheumatoid arthritis
     Route: 041
  2. SIMPONI [Suspect]
     Active Substance: GOLIMUMAB
     Route: 041
     Dates: start: 20150722
  3. SIMPONI [Suspect]
     Active Substance: GOLIMUMAB
     Route: 041
     Dates: start: 20240213

REACTIONS (3)
  - Rheumatoid arthritis [Recovering/Resolving]
  - Cystitis [Recovered/Resolved]
  - Therapeutic response decreased [Not Recovered/Not Resolved]
